FAERS Safety Report 13045691 (Version 1)
Quarter: 2016Q4

REPORT INFORMATION
  Report Type: Report from Study
  Country: US (occurrence: US)
  Receive Date: 20161220
  Receipt Date: 20161220
  Transmission Date: 20170207
  Serious: No
  Sender: FDA-Public Use
  Company Number: US-BIOVITRUM-2015US0609

PATIENT
  Sex: Female
  Weight: 74.46 kg

DRUGS (6)
  1. COLCHICINE. [Concomitant]
     Active Substance: COLCHICINE
  2. FISH OIL [Concomitant]
     Active Substance: FISH OIL
  3. PREDNISONE. [Concomitant]
     Active Substance: PREDNISONE
     Route: 048
  4. KINERET [Suspect]
     Active Substance: ANAKINRA
     Indication: PERICARDITIS
     Route: 058
     Dates: start: 20150926, end: 20151007
  5. ALEVE [Concomitant]
     Active Substance: NAPROXEN SODIUM
     Dosage: 2 TABLETS, 2 TIMES/DAY WHEN NEEDED
  6. VITAMIN [Concomitant]
     Active Substance: VITAMINS

REACTIONS (1)
  - Maternal exposure during pregnancy [Unknown]
